FAERS Safety Report 14293160 (Version 2)
Quarter: 2017Q4

REPORT INFORMATION
  Report Type: Report from Study
  Country: KR (occurrence: KR)
  Receive Date: 20171215
  Receipt Date: 20171222
  Transmission Date: 20180321
  Serious: Yes (Life-Threatening, Hospitalization, Other)
  Sender: FDA-Public Use
  Company Number: KR-BRISTOL-MYERS SQUIBB COMPANY-BMS-2017-077607

PATIENT
  Age: 73 Year
  Sex: Female
  Weight: 52.4 kg

DRUGS (2)
  1. NIVOLUMAB [Suspect]
     Active Substance: NIVOLUMAB
     Indication: SMALL CELL LUNG CANCER
     Dosage: 1 MG/KG, Q2WK
     Route: 042
     Dates: start: 20170809
  2. IPILIMUMAB [Suspect]
     Active Substance: IPILIMUMAB
     Indication: SMALL CELL LUNG CANCER
     Dosage: 3 MG/KG, Q3WK
     Route: 042
     Dates: start: 20170809

REACTIONS (2)
  - Diabetic ketoacidosis [Recovered/Resolved]
  - Type 1 diabetes mellitus [Unknown]

NARRATIVE: CASE EVENT DATE: 20170829
